FAERS Safety Report 9343348 (Version 1)
Quarter: 2013Q2

REPORT INFORMATION
  Report Type: Report from Study
  Country: US (occurrence: US)
  Receive Date: 20130612
  Receipt Date: 20130612
  Transmission Date: 20140414
  Serious: Yes (Other)
  Sender: FDA-Public Use
  Company Number: US-ROCHE-1233878

PATIENT
  Sex: Male

DRUGS (9)
  1. LUCENTIS [Suspect]
     Indication: DIABETIC RETINAL OEDEMA
     Route: 050
  2. LUCENTIS [Suspect]
     Indication: RETINOPATHY
  3. OMEPRAZOLE [Concomitant]
     Indication: NAUSEA
     Route: 048
  4. LOSARTAN [Concomitant]
     Route: 048
  5. AMLODIPINE BESYLATE [Concomitant]
     Route: 048
  6. FLUOXETINE [Concomitant]
     Indication: NERVOUSNESS
     Route: 048
  7. LISINOPRIL [Concomitant]
     Route: 048
  8. JANUMET [Concomitant]
     Indication: DIABETES MELLITUS
     Route: 048
  9. NOVOLIN [Concomitant]
     Indication: DIABETES MELLITUS
     Dosage: 30 UNITS IN THE AM, AND BEFORE EACH MEAL AS REQUIRED
     Route: 058

REACTIONS (4)
  - Arterial occlusive disease [Not Recovered/Not Resolved]
  - Drug ineffective [Unknown]
  - Blood potassium increased [Not Recovered/Not Resolved]
  - Visual impairment [Not Recovered/Not Resolved]
